FAERS Safety Report 5906675-X (Version None)
Quarter: 2008Q3

REPORT INFORMATION
  Report Type: 
  Country: None (occurrence: None)
  Receive Date: 20080930
  Receipt Date: 20080919
  Transmission Date: 20090109
  Serious: Yes (Death)
  Sender: FDA-Public Use
  Company Number: TCI2008A04844

PATIENT
  Age: 88 Year
  Sex: Female

DRUGS (1)
  1. LANSOPRAZOLE [Suspect]
     Indication: GASTRIC ULCER HAEMORRHAGE
     Route: 042

REACTIONS (2)
  - GLYCOSYLATED HAEMOGLOBIN DECREASED [None]
  - HAEMOLYTIC ANAEMIA [None]
